FAERS Safety Report 14212453 (Version 1)
Quarter: 2017Q4

REPORT INFORMATION
  Report Type: Spontaneous
  Country: US (occurrence: US)
  Receive Date: 20171122
  Receipt Date: 20171122
  Transmission Date: 20180321
  Serious: Yes (Other)
  Sender: FDA-Public Use
  Company Number: US-ELI_LILLY_AND_COMPANY-US201711006375

PATIENT
  Age: 69 Year
  Sex: Female

DRUGS (5)
  1. HUMALOG [Suspect]
     Active Substance: INSULIN LISPRO
     Indication: PRODUCT USED FOR UNKNOWN INDICATION
     Dosage: UNK, UNKNOWN
     Route: 058
     Dates: start: 201612
  2. LYRICA [Concomitant]
     Active Substance: PREGABALIN
  3. HUMALOG [Suspect]
     Active Substance: INSULIN LISPRO
     Dosage: UNK, UNKNOWN
     Route: 058
  4. LANTUS [Concomitant]
     Active Substance: INSULIN GLARGINE
  5. CALCIUM [Concomitant]
     Active Substance: CALCIUM

REACTIONS (10)
  - Injection site haemorrhage [Unknown]
  - Feeling abnormal [Unknown]
  - Herpes zoster [Unknown]
  - Cerebrovascular accident [Unknown]
  - Peripheral swelling [Unknown]
  - Back pain [Unknown]
  - Headache [Unknown]
  - Blindness [Unknown]
  - Incorrect dose administered [Unknown]
  - Insomnia [Unknown]

NARRATIVE: CASE EVENT DATE: 201705
